FAERS Safety Report 5724714-6 (Version None)
Quarter: 2008Q2

REPORT INFORMATION
  Report Type: 
  Country: None (occurrence: None)
  Receive Date: 20080430
  Receipt Date: 20080430
  Transmission Date: 20081010
  Serious: Yes (Other)
  Sender: FDA-Public Use
  Company Number: None

PATIENT
  Age: 57 Year
  Sex: Male
  Weight: 90.7194 kg

DRUGS (2)
  1. OMNISCAN [Suspect]
     Indication: ANGIOGRAM
     Dosage: 19CC, 20CC, 40CC, 18CC  IV
     Route: 042
     Dates: start: 20050518, end: 20050715
  2. OMNISCAN [Suspect]
     Indication: NUCLEAR MAGNETIC RESONANCE IMAGING BRAIN
     Dosage: 19CC, 20CC, 40CC, 18CC  IV
     Route: 042
     Dates: start: 20050518, end: 20050715

REACTIONS (2)
  - HAEMODIALYSIS [None]
  - NEPHROGENIC SYSTEMIC FIBROSIS [None]
